FAERS Safety Report 5159025-3 (Version None)
Quarter: 2006Q4

REPORT INFORMATION
  Report Type: 
  Country: None (occurrence: None)
  Receive Date: 20061117
  Receipt Date: 20061108
  Transmission Date: 20070319
  Serious: Yes (Hospitalization, Congenital Anomaly)
  Sender: FDA-Public Use
  Company Number: GXKR2006GB07198

PATIENT
  Age: 5 Week
  Sex: Female
  Weight: 2.3 kg

DRUGS (2)
  1. PAROXETINE HCL [Suspect]
     Dosage: TRANSPLACENTAL
     Route: 064
  2. OLANZAPINE [Suspect]
     Dosage: TRANSPLACENTAL
     Route: 064

REACTIONS (5)
  - AGITATION NEONATAL [None]
  - DRUG EXPOSURE DURING PREGNANCY [None]
  - DRUG WITHDRAWAL SYNDROME NEONATAL [None]
  - HYPOGLYCAEMIA NEONATAL [None]
  - SUPERNUMERARY NIPPLE [None]
